FAERS Safety Report 23642587 (Version 1)
Quarter: 2024Q1

REPORT INFORMATION
  Report Type: Spontaneous
  Country: CA (occurrence: CA)
  Receive Date: 20240318
  Receipt Date: 20240318
  Transmission Date: 20240409
  Serious: Yes (Hospitalization, Other)
  Sender: FDA-Public Use
  Company Number: CA-HIKMA PHARMACEUTICALS-CA-H14001-23-65083

PATIENT
  Age: 72 Year
  Sex: Male

DRUGS (14)
  1. AZACITIDINE [Suspect]
     Active Substance: AZACITIDINE
     Dosage: 75 MILLIGRAM/SQ. METER, QD
     Route: 065
  2. AZACITIDINE [Suspect]
     Active Substance: AZACITIDINE
     Dosage: 75 MILLIGRAM/SQ. METER, QD
     Route: 065
  3. AZACITIDINE [Suspect]
     Active Substance: AZACITIDINE
     Indication: Acute myeloid leukaemia
     Dosage: 75 MILLIGRAM/SQ. METER, QD
     Route: 065
  4. VENCLEXTA [Suspect]
     Active Substance: VENETOCLAX
     Dosage: 200 MILLIGRAM
     Route: 048
  5. VENCLEXTA [Suspect]
     Active Substance: VENETOCLAX
     Indication: Acute myeloid leukaemia
     Dosage: 50 MILLIGRAM, QD
     Route: 048
  6. VENETOCLAX [Suspect]
     Active Substance: VENETOCLAX
     Indication: Acute myeloid leukaemia
     Dosage: 100 MILLIGRAM, QD
     Route: 048
  7. VENETOCLAX [Suspect]
     Active Substance: VENETOCLAX
     Dosage: 200 MILLIGRAM, QD
     Route: 048
  8. VENETOCLAX [Suspect]
     Active Substance: VENETOCLAX
     Dosage: 50 MILLIGRAM, QD
     Route: 048
  9. VENETOCLAX [Suspect]
     Active Substance: VENETOCLAX
     Dosage: UNK
     Route: 048
  10. BUSULFAN [Concomitant]
     Active Substance: BUSULFAN
     Indication: Product used for unknown indication
     Dosage: UNK
     Route: 065
  11. COVID-19 VACCINE MRNA [Concomitant]
     Indication: COVID-19 immunisation
     Dosage: UNK
     Route: 065
  12. FLUDARABINE [Concomitant]
     Active Substance: FLUDARABINE PHOSPHATE
     Indication: Product used for unknown indication
     Dosage: UNK
     Route: 065
  13. FILGRASTIM [Concomitant]
     Active Substance: FILGRASTIM
     Dosage: UNK
     Route: 065
  14. FILGRASTIM [Concomitant]
     Active Substance: FILGRASTIM
     Indication: Neutrophil count decreased
     Dosage: 480 MICROGRAM, QD
     Route: 065

REACTIONS (2)
  - Neutrophil count decreased [Recovered/Resolved]
  - Bronchitis [Recovered/Resolved]
